FAERS Safety Report 6157478 (Version 1)
Quarter: 2020Q3

REPORT INFORMATION
  Report Type: Report from Study
  Country: FR (occurrence: FR)
  Receive Date: 20061030
  Receipt Date: 20061030
  Transmission Date: 20201105
  Serious: Yes (Disabling)
  Sender: FDA-Public Use
  Company Number: FR-ROCHE-467620

PATIENT
  Age: 69 Year
  Sex: Female
  Weight: 75 kg

DRUGS (10)
  1. BISOPROLOL [Concomitant]
     Active Substance: BISOPROLOL
     Dates: start: 20030715
  2. DIGOXIN. [Concomitant]
     Active Substance: DIGOXIN
     Dates: start: 20030715
  3. IBANDRONIC ACID. [Suspect]
     Active Substance: IBANDRONIC ACID
     Route: 042
     Dates: start: 20060620, end: 20061016
  4. CALTRATE [Concomitant]
     Active Substance: CALCIUM CARBONATE
     Dates: start: 20000615
  5. UNSPECIFIED INGREDIENT [Concomitant]
     Active Substance: UNSPECIFIED INGREDIENT
     Dosage: REPORTED AS UFT/CELLTOP.
     Dates: start: 20060321
  6. NEURONTIN [Concomitant]
     Active Substance: GABAPENTIN
     Dates: start: 20030615
  7. TAMOXIFEN CITRATE. [Concomitant]
     Active Substance: TAMOXIFEN CITRATE
     Dates: start: 20060313
  8. ALDACTONE [Concomitant]
     Active Substance: SPIRONOLACTONE
     Dates: start: 20030715
  9. PREVISCAN (FLUINDIONE) [Concomitant]
     Active Substance: FLUINDIONE
     Dates: start: 20030715
  10. TAREG [Concomitant]
     Active Substance: VALSARTAN
     Dates: start: 20030715

REACTIONS (1)
  - Pain in jaw [Not Recovered/Not Resolved]

NARRATIVE: CASE EVENT DATE: 20060701
